FAERS Safety Report 7517875-X (Version None)
Quarter: 2011Q2

REPORT INFORMATION
  Report Type: 
  Country: None (occurrence: None)
  Receive Date: 20110602
  Receipt Date: 20110127
  Transmission Date: 20111010
  Serious: Yes (Hospitalization, Other)
  Sender: FDA-Public Use
  Company Number: US-BAYER-201023252NA

PATIENT
  Age: 26 Year
  Sex: Female
  Weight: 49 kg

DRUGS (5)
  1. VICODIN [Concomitant]
  2. IBUPROFEN [Concomitant]
  3. YASMIN [Suspect]
     Indication: CONTRACEPTION
     Dosage: UNK UNK, UNK
     Route: 048
     Dates: start: 20060101, end: 20080101
  4. YASMIN [Suspect]
     Indication: PREMENSTRUAL SYNDROME
  5. CIPROFLOXACIN [Concomitant]

REACTIONS (4)
  - MENTAL DISORDER [None]
  - MOOD SWINGS [None]
  - CHOLECYSTITIS [None]
  - GALLBLADDER INJURY [None]
